FAERS Safety Report 8504994-4 (Version None)
Quarter: 2012Q3

REPORT INFORMATION
  Report Type: 
  Country: None (occurrence: None)
  Receive Date: 20120712
  Receipt Date: 20120629
  Transmission Date: 20120928
  Serious: Yes (Death, Hospitalization)
  Sender: FDA-Public Use
  Company Number: US-VERTEX PHARMACEUTICALS INC.-AE-2012-003492

PATIENT
  Sex: Male
  Weight: 99.88 kg

DRUGS (11)
  1. VITAMIN D [Concomitant]
  2. METOPROLOL TARTRATE [Concomitant]
  3. RIBAVIRIN [Concomitant]
     Indication: HEPATITIS C
     Dates: start: 20120217, end: 20120227
  4. METHADONE HCL [Concomitant]
     Route: 048
  5. INCIVEK [Suspect]
     Indication: HEPATITIS C
     Route: 048
     Dates: start: 20120221, end: 20120227
  6. LISINOPRIL [Concomitant]
  7. VITAMIN E [Concomitant]
  8. ONDANSETRON [Concomitant]
  9. PEGASYS [Concomitant]
     Indication: HEPATITIS C
     Dates: start: 20120217, end: 20120227
  10. HYDROXYZINE [Concomitant]
  11. BENADRYL [Concomitant]

REACTIONS (2)
  - HEPATORENAL FAILURE [None]
  - SEPSIS [None]
